FAERS Safety Report 9175123 (Version 1)
Quarter: 2013Q1

REPORT INFORMATION
  Report Type: Spontaneous
  Country: US (occurrence: US)
  Receive Date: 20130320
  Receipt Date: 20130320
  Transmission Date: 20140127
  Serious: Yes (Hospitalization, Other)
  Sender: FDA-Public Use
  Company Number: US-ASTRAZENECA-2013SE16253

PATIENT
  Age: 46 Year
  Sex: Female

DRUGS (10)
  1. PRILOSEC [Suspect]
     Route: 048
  2. SEROQUEL [Suspect]
     Route: 048
  3. SERTRALINE [Suspect]
     Route: 065
  4. AMPYRA [Suspect]
     Indication: GAIT DISTURBANCE
     Route: 065
     Dates: start: 201209, end: 201210
  5. GABAPENTIN [Suspect]
     Route: 065
  6. FLONASE [Suspect]
     Route: 065
  7. CELEBREX [Suspect]
     Route: 065
  8. TIZANIDINE [Suspect]
     Route: 065
  9. DEPO PROVERA [Suspect]
     Indication: CONTRACEPTION
     Route: 065
     Dates: end: 201212
  10. IRON SUPPLEMENT [Concomitant]

REACTIONS (10)
  - Renal failure acute [Unknown]
  - Hypertension [Unknown]
  - Hypokalaemia [Unknown]
  - Multiple sclerosis relapse [Unknown]
  - Gastrooesophageal reflux disease [Unknown]
  - Pancreatitis acute [Recovered/Resolved]
  - Paranoia [Unknown]
  - Gallbladder disorder [Recovered/Resolved]
  - Hypotension [Recovered/Resolved]
  - Obesity [Unknown]
